FAERS Safety Report 21291090 (Version 10)
Quarter: 2025Q1

REPORT INFORMATION
  Report Type: Report from Study
  Country: CA (occurrence: CA)
  Receive Date: 20220903
  Receipt Date: 20250106
  Transmission Date: 20250408
  Serious: Yes (Other)
  Sender: TAKEDA
  Company Number: CA-TAKEDA-2022TUS018446

PATIENT
  Sex: Male

DRUGS (3)
  1. VEDOLIZUMAB [Suspect]
     Active Substance: VEDOLIZUMAB
     Indication: Crohn^s disease
     Dates: start: 20210611, end: 20230614
  2. VEDOLIZUMAB [Suspect]
     Active Substance: VEDOLIZUMAB
  3. VEDOLIZUMAB [Suspect]
     Active Substance: VEDOLIZUMAB

REACTIONS (10)
  - Crohn^s disease [Unknown]
  - Stress [Unknown]
  - Loss of personal independence in daily activities [Unknown]
  - Therapeutic reaction time decreased [Unknown]
  - Frequent bowel movements [Recovering/Resolving]
  - Faeces soft [Recovering/Resolving]
  - Defaecation urgency [Recovering/Resolving]
  - Abdominal pain [Recovering/Resolving]
  - Back pain [Unknown]
  - Arthralgia [Unknown]
